FAERS Safety Report 25687444 (Version 1)
Quarter: 2025Q3

REPORT INFORMATION
  Report Type: Spontaneous
  Country: US (occurrence: US)
  Receive Date: 20250817
  Receipt Date: 20250817
  Transmission Date: 20251020
  Serious: No
  Sender: SANOFI AVENTIS
  Company Number: US-SA-2025SA240449

PATIENT
  Sex: Female

DRUGS (19)
  1. DUPIXENT [Suspect]
     Active Substance: DUPILUMAB
     Indication: Dermatitis atopic
     Dosage: 300 MG, QOW
     Route: 058
  2. VITAMIN B COMPLEX [Concomitant]
     Active Substance: CYANOCOBALAMIN\DEXPANTHENOL\NIACINAMIDE\PYRIDOXINE HYDROCHLORIDE\RIBOFLAVIN 5^-PHOSPHATE SODIUM\THIA
  3. ALLOPURINOL [Concomitant]
     Active Substance: ALLOPURINOL
  4. ASPIRIN [Concomitant]
     Active Substance: ASPIRIN
  5. ATORVASTATIN [Concomitant]
     Active Substance: ATORVASTATIN
  6. AZELASTINE HYDROCHLORIDE [Concomitant]
     Active Substance: AZELASTINE HYDROCHLORIDE
  7. BREZTRI [Concomitant]
     Active Substance: BUDESONIDE\FORMOTEROL\GLYCOPYRROLATE
  8. CALCITRIOL [Concomitant]
     Active Substance: CALCITRIOL
  9. CALCIUM [Concomitant]
     Active Substance: CALCIUM
  10. DILTIAZEM HYDROCHLORIDE [Concomitant]
     Active Substance: DILTIAZEM HYDROCHLORIDE
  11. FUROSEMIDE [Concomitant]
     Active Substance: FUROSEMIDE
  12. KETOCONAZOLE [Concomitant]
     Active Substance: KETOCONAZOLE
  13. MAGNESIUM [Concomitant]
     Active Substance: MAGNESIUM
  14. METOPROLOL [Concomitant]
     Active Substance: METOPROLOL
  15. MOUNJARO [Concomitant]
     Active Substance: TIRZEPATIDE
  16. NOVOLOG [Concomitant]
     Active Substance: INSULIN ASPART
  17. POTASSIUM CHLORATE [Concomitant]
     Active Substance: POTASSIUM CHLORATE
  18. PROLIA [Concomitant]
     Active Substance: DENOSUMAB
  19. TOUJEO [Concomitant]
     Active Substance: INSULIN GLARGINE

REACTIONS (1)
  - Pruritus [Not Recovered/Not Resolved]
